FAERS Safety Report 7328856-3 (Version None)
Quarter: 2011Q1

REPORT INFORMATION
  Report Type: 
  Country: None (occurrence: None)
  Receive Date: 20110225
  Receipt Date: 20110225
  Transmission Date: 20110831
  Serious: Yes (Hospitalization)
  Sender: FDA-Public Use
  Company Number: None

PATIENT
  Sex: Female
  Weight: 61.3 kg

DRUGS (2)
  1. CARBOPLATIN [Suspect]
     Dosage: 575 MG
     Dates: end: 20110201
  2. TAXOL [Suspect]
     Dosage: 294 MG
     Dates: end: 20110201

REACTIONS (5)
  - MALAISE [None]
  - PYREXIA [None]
  - PAIN [None]
  - COUGH [None]
  - NEUTROPHIL COUNT DECREASED [None]
